FAERS Safety Report 26204221 (Version 1)
Quarter: 2025Q4

REPORT INFORMATION
  Report Type: Spontaneous
  Country: CA (occurrence: CA)
  Receive Date: 20251226
  Receipt Date: 20251226
  Transmission Date: 20260118
  Serious: Yes (Life-Threatening, Hospitalization)
  Sender: GALPHARM INTERNATIONAL
  Company Number: CA-MLMSERVICE-20251211-PI746649-00029-1

PATIENT
  Age: 60 Year
  Sex: Male

DRUGS (1)
  1. ACETAMINOPHEN [Suspect]
     Active Substance: ACETAMINOPHEN
     Indication: Product used for unknown indication
     Dosage: UNKNOWN, UNKNOWN
     Route: 048

REACTIONS (5)
  - Acute hepatic failure [Unknown]
  - Aspergillus infection [Recovering/Resolving]
  - Brain abscess [Recovering/Resolving]
  - Vasogenic cerebral oedema [Recovering/Resolving]
  - Overdose [Unknown]
